FAERS Safety Report 8549423-X (Version None)
Quarter: 2012Q3

REPORT INFORMATION
  Report Type: 
  Country: None (occurrence: None)
  Receive Date: 20120730
  Receipt Date: 20120723
  Transmission Date: 20120928
  Serious: Yes (Other)
  Sender: FDA-Public Use
  Company Number: US-PFIZER INC-2012178691

PATIENT
  Sex: Female
  Weight: 102 kg

DRUGS (6)
  1. EFFEXOR XR [Suspect]
     Indication: DEPRESSION
     Dosage: 375 MG, DAILY
     Route: 048
     Dates: start: 20060401
  2. PREMPRO [Concomitant]
     Indication: MENOPAUSE
     Dosage: UNK
     Route: 048
     Dates: start: 20061001
  3. EFFEXOR XR [Suspect]
     Dosage: 150 MG, UNK
     Route: 048
     Dates: start: 20120710
  4. LISINOPRIL [Concomitant]
     Indication: BLOOD PRESSURE ABNORMAL
     Dosage: 25 MG, DAILY
  5. EFFEXOR XR [Suspect]
     Dosage: UNK
     Route: 048
  6. CALAN [Concomitant]
     Indication: BLOOD PRESSURE ABNORMAL
     Dosage: 120 MG, UNK
     Route: 048
     Dates: start: 19900101

REACTIONS (6)
  - INSOMNIA [None]
  - HALLUCINATION, AUDITORY [None]
  - SUICIDAL IDEATION [None]
  - SOMNOLENCE [None]
  - DEPRESSION [None]
  - FEELING ABNORMAL [None]
